FAERS Safety Report 9517875 (Version 1)
Quarter: 2013Q3

REPORT INFORMATION
  Report Type: Spontaneous
  Country: US (occurrence: None)
  Receive Date: 20130910
  Receipt Date: 20130910
  Transmission Date: 20140515
  Serious: Yes (Life-Threatening, Hospitalization, Disabling)
  Sender: FDA-Public Use
  Company Number: None

PATIENT
  Age: 27 Year
  Sex: Male

DRUGS (2)
  1. PROMETHAZINE [Suspect]
     Indication: INFLUENZA LIKE ILLNESS
     Dosage: 1 PILL
     Route: 048
     Dates: start: 20130327, end: 20130327
  2. TRAMADOL [Suspect]

REACTIONS (5)
  - Dyspnoea [None]
  - Cardiac arrest [None]
  - Convulsion [None]
  - Coma [None]
  - Blindness [None]
